FAERS Safety Report 9258950 (Version 3)
Quarter: 2015Q2

REPORT INFORMATION
  Report Type: Spontaneous
  Country: US (occurrence: US)
  Receive Date: 20130426
  Receipt Date: 20150413
  Transmission Date: 20150821
  Serious: Yes (Hospitalization, Disabling, Other)
  Sender: FDA-Public Use
  Company Number: US-009507513-1304USA010638

PATIENT
  Sex: Male
  Weight: 88.44 kg

DRUGS (2)
  1. PROPECIA [Suspect]
     Active Substance: FINASTERIDE
     Indication: ALOPECIA
     Dosage: 1 MG, QD
     Route: 048
     Dates: start: 19980623, end: 20020502
  2. PROPECIA [Suspect]
     Active Substance: FINASTERIDE
     Dosage: 1 MG, QD
     Route: 048
     Dates: start: 20040907

REACTIONS (19)
  - Urinary tract obstruction [Unknown]
  - Left ventricular hypertrophy [Unknown]
  - Fatigue [Unknown]
  - Hypertensive nephropathy [Unknown]
  - Hypertension [Unknown]
  - Heart sounds [Unknown]
  - Sexual dysfunction [Not Recovered/Not Resolved]
  - Erectile dysfunction [Recovered/Resolved]
  - Loss of libido [Unknown]
  - Back pain [Unknown]
  - Cognitive disorder [Not Recovered/Not Resolved]
  - Benign prostatic hyperplasia [Unknown]
  - Cyst [Unknown]
  - Gastrooesophageal reflux disease [Unknown]
  - Hypercholesterolaemia [Unknown]
  - Hypogonadism [Recovered/Resolved]
  - Libido decreased [Unknown]
  - Bronchitis [Unknown]
  - Haemorrhoids [Unknown]

NARRATIVE: CASE EVENT DATE: 199806
